FAERS Safety Report 16362349 (Version 1)
Quarter: 2019Q3

REPORT INFORMATION
  Report Type: Spontaneous
  Country: US (occurrence: US)
  Receive Date: 20190526
  Receipt Date: 20190526
  Transmission Date: 20191004
  Serious: Yes (Hospitalization, Disabling, Other)
  Sender: FDA-Public Use
  Company Number: None

PATIENT
  Age: 11 Year
  Sex: Female
  Weight: 33.75 kg

DRUGS (1)
  1. MIRALAX [Suspect]
     Active Substance: POLYETHYLENE GLYCOL 3350
     Indication: CONSTIPATION

REACTIONS (11)
  - Anxiety [None]
  - Agitation [None]
  - Obsessive-compulsive disorder [None]
  - Arthralgia [None]
  - Abnormal behaviour [None]
  - Gastrointestinal disorder [None]
  - Tic [None]
  - Anger [None]
  - Neuropsychiatric symptoms [None]
  - Loss of personal independence in daily activities [None]
  - Impaired quality of life [None]

NARRATIVE: CASE EVENT DATE: 20190106
